FAERS Safety Report 8215937-5 (Version None)
Quarter: 2012Q1

REPORT INFORMATION
  Report Type: 
  Country: None (occurrence: None)
  Receive Date: 20120316
  Receipt Date: 20120312
  Transmission Date: 20120608
  Serious: Yes (Other)
  Sender: FDA-Public Use
  Company Number: US-PFIZER INC-2012065445

PATIENT
  Sex: Female
  Weight: 61.224 kg

DRUGS (3)
  1. TIMOPTIC [Suspect]
     Indication: GLAUCOMA
     Dosage: UNK, 1X/DAY
     Route: 047
     Dates: start: 20090101, end: 20090101
  2. ACTONEL [Concomitant]
     Indication: OSTEOPOROSIS
     Dosage: 150 MG, MONTHLY
  3. XALATAN [Suspect]
     Indication: GLAUCOMA
     Dosage: UNK, 1X/DAY
     Route: 047
     Dates: start: 20070101

REACTIONS (5)
  - EYE SWELLING [None]
  - EYE DISORDER [None]
  - VISUAL IMPAIRMENT [None]
  - LACRIMATION INCREASED [None]
  - OCULAR HYPERAEMIA [None]
